FAERS Safety Report 18190888 (Version 2)
Quarter: 2020Q3

REPORT INFORMATION
  Report Type: Report from Study
  Country: PK (occurrence: PK)
  Receive Date: 20200824
  Receipt Date: 20200904
  Transmission Date: 20201103
  Serious: Yes (Death, Other)
  Sender: FDA-Public Use
  Company Number: NVSC2020PK232943

PATIENT
  Age: 72 Year
  Sex: Female

DRUGS (4)
  1. EXELON [Suspect]
     Active Substance: RIVASTIGMINE TARTRATE
     Indication: DEMENTIA ALZHEIMER^S TYPE
     Dosage: 27 MG, QD (15 CM2)
     Route: 061
     Dates: start: 20180714
  2. LOWPLAT [Concomitant]
     Indication: PLATELET AGGREGATION INHIBITION
     Dosage: 75 MG, QD
     Route: 065
     Dates: start: 20180714
  3. EZIDAY [Concomitant]
     Indication: HYPERTENSION
     Dosage: 25 MG, QD
     Route: 048
     Dates: start: 20180714
  4. LIPIGET [Concomitant]
     Indication: HYPERCHOLESTEROLAEMIA
     Dosage: 10 MG, QD
     Route: 048
     Dates: start: 20180714

REACTIONS (5)
  - Vomiting [Unknown]
  - Depressed level of consciousness [Unknown]
  - Hypertension [Fatal]
  - Heart rate decreased [Unknown]
  - Cardiac failure [Fatal]
